FAERS Safety Report 4536924-4 (Version None)
Quarter: 2004Q4

REPORT INFORMATION
  Report Type: 
  Country: None (occurrence: None)
  Receive Date: 20041220
  Receipt Date: 20041207
  Transmission Date: 20050328
  Serious: Yes (Other)
  Sender: FDA-Public Use
  Company Number: 2004106641

PATIENT
  Age: 29 Year
  Sex: Female
  Weight: 49.8957 kg

DRUGS (4)
  1. BENADRYL [Suspect]
     Indication: PRURITUS
     Dosage: POSSIBLY 3-6 TEASPOONFULS, ORAL
     Route: 048
     Dates: start: 20041206
  2. OXYCPCET (OXYCODONE HYDROCHLORIDE, PARACETAMOL) [Suspect]
     Indication: PAIN
     Dosage: ORAL
     Route: 048
     Dates: start: 20041206
  3. TIAGABINE HYDROCHLORIDE (TIAGABINE HYDROCHLORIDE) [Concomitant]
  4. CLONAZEPAM [Concomitant]

REACTIONS (7)
  - ACCIDENTAL EXPOSURE [None]
  - CONVULSION [None]
  - FATIGUE [None]
  - FEELING ABNORMAL [None]
  - HYPOVENTILATION [None]
  - MEDICATION ERROR [None]
  - TREMOR [None]
